FAERS Safety Report 13503384 (Version 1)
Quarter: 2017Q2

REPORT INFORMATION
  Report Type: Report from Study
  Country: US (occurrence: US)
  Receive Date: 20170502
  Receipt Date: 20170502
  Transmission Date: 20170830
  Serious: Yes (Hospitalization, Other)
  Sender: FDA-Public Use
  Company Number: US-BAYER-2017-076846

PATIENT
  Age: 25 Year
  Sex: Female

DRUGS (2)
  1. BETASERON [Suspect]
     Active Substance: INTERFERON BETA-1B
     Indication: MULTIPLE SCLEROSIS
     Dosage: 8 MIU, QOD
     Route: 058
     Dates: start: 20150129, end: 20160301
  2. BETASERON [Suspect]
     Active Substance: INTERFERON BETA-1B
     Indication: MULTIPLE SCLEROSIS
     Dosage: FULL DOSE
     Dates: start: 20170406

REACTIONS (6)
  - Vision blurred [Recovered/Resolved]
  - Balance disorder [Recovered/Resolved]
  - Maternal exposure during pregnancy [None]
  - Premature delivery [Recovered/Resolved]
  - Multiple sclerosis relapse [Recovered/Resolved]
  - Caesarean section [Recovered/Resolved]

NARRATIVE: CASE EVENT DATE: 20160301
